FAERS Safety Report 9544084 (Version 3)
Quarter: 2013Q4

REPORT INFORMATION
  Report Type: Spontaneous
  Country: US (occurrence: US)
  Receive Date: 20130923
  Receipt Date: 20131010
  Transmission Date: 20140711
  Serious: Yes (Other)
  Sender: FDA-Public Use
  Company Number: US-BAYER-2013-111099

PATIENT
  Age: 47 Year
  Sex: Female
  Weight: 47.62 kg

DRUGS (4)
  1. ALKA-SELTZER PLUS COLD + COUGH FORMULA CITRUS [Suspect]
     Indication: NASOPHARYNGITIS
     Dosage: 2 DF, Q4HR
     Route: 048
  2. WELLBUTRIN [Concomitant]
  3. KLONOPIN [Concomitant]
  4. PROPRANOLOL RETARD [Concomitant]

REACTIONS (8)
  - Viral infection [Recovered/Resolved]
  - Nausea [Recovered/Resolved]
  - Dyspnoea [Recovered/Resolved]
  - Hypoaesthesia [Recovered/Resolved]
  - Dizziness [Recovered/Resolved]
  - Extra dose administered [None]
  - Dizziness [Recovered/Resolved]
  - Dehydration [Recovered/Resolved]
